FAERS Safety Report 4562164-9 (Version None)
Quarter: 2005Q1

REPORT INFORMATION
  Report Type: 
  Country: None (occurrence: None)
  Receive Date: 20050121
  Receipt Date: 20050113
  Transmission Date: 20050727
  Serious: Yes (Other)
  Sender: FDA-Public Use
  Company Number: KII-2003-0003366

PATIENT
  Age: 70 Year
  Sex: Male

DRUGS (13)
  1. OXYCONTIN [Suspect]
     Indication: PAIN
     Dosage: 60 MG, BID
  2. PERCOCET [Suspect]
     Indication: PAIN
  3. LASIX [Suspect]
     Dosage: SEE IMAGE
  4. ALBUTEROL SULFATE [Suspect]
  5. ADVAIR DISKUS (FLUTICASONE PROPIONATE) [Suspect]
  6. ANTIHYPERTENSIVES () [Suspect]
  7. POTASSIUM CHLORIDE [Suspect]
  8. LACTANOSE (MALT EXTRACT, LACTOBACILLUS ACIDOPHILUS, SODIUM PHOSPHATE, [Suspect]
  9. COLACE CAPSULES (DOCUSATE SODIUM) CAPSULE [Suspect]
  10. ALBUTEROL [Suspect]
  11. ADVAIR DISKUS (FLUTICASONE PROPIONATE) [Suspect]
  12. ATROVENT [Suspect]
  13. OXYGEN (OXYGEN) [Concomitant]

REACTIONS (10)
  - CARDIAC FAILURE CONGESTIVE [None]
  - DIARRHOEA [None]
  - DRUG INEFFECTIVE [None]
  - DRUG TOLERANCE DECREASED [None]
  - GENERALISED OEDEMA [None]
  - HALLUCINATION [None]
  - INADEQUATE ANALGESIA [None]
  - MYCOBACTERIUM AVIUM COMPLEX INFECTION [None]
  - RESPIRATORY DISTRESS [None]
  - SOMNOLENCE [None]
